FAERS Safety Report 8198565 (Version 2)
Quarter: 2012Q4

REPORT INFORMATION
  Report Type: Report from Study
  Country: CA (occurrence: CA)
  Receive Date: 20111025
  Receipt Date: 20121114
  Transmission Date: 20130627
  Serious: Yes (Other)
  Sender: FDA-Public Use
  Company Number: CA-ROCHE-799715

PATIENT
  Age: 46 Year
  Sex: Female
  Weight: 92.6 kg

DRUGS (6)
  1. VEMURAFENIB [Suspect]
     Indication: METASTATIC MALIGNANT MELANOMA
     Dosage: TEMPORARILY INTERRUPTED
     Route: 048
     Dates: start: 20110531, end: 20110824
  2. VEMURAFENIB [Suspect]
     Route: 048
  3. HYDROCHLOROTHIAZIDE [Suspect]
     Indication: BLOOD PRESSURE
     Route: 065
     Dates: start: 20110805, end: 20110824
  4. IRON SUPPLEMENT [Concomitant]
     Route: 065
  5. LANSOPRAZOLE [Concomitant]
     Route: 065
  6. AMLODIPINE [Concomitant]
     Route: 065
     Dates: start: 20110302, end: 20110727

REACTIONS (1)
  - Blood creatinine increased [Recovered/Resolved]
